FAERS Safety Report 4640674-3 (Version None)
Quarter: 2005Q2

REPORT INFORMATION
  Report Type: 
  Country: None (occurrence: None)
  Receive Date: 20050420
  Receipt Date: 20050411
  Transmission Date: 20051028
  Serious: Yes (Other)
  Sender: FDA-Public Use
  Company Number: JP-ABBOTT-05P-087-0297061-00

PATIENT
  Age: 13 Year
  Sex: Female

DRUGS (2)
  1. LEVOTHYROXINE SODIUM [Suspect]
     Indication: PRIMARY HYPOTHYROIDISM
     Dosage: NOT REPORTED, NOT REPORTED
  2. LEVOTHYROXINE SODIUM [Suspect]
     Dosage: NOT REPORTED, NOT REPORTED

REACTIONS (3)
  - FATIGUE [None]
  - HEPATIC FUNCTION ABNORMAL [None]
  - PYREXIA [None]
